FAERS Safety Report 13778670 (Version 2)
Quarter: 2017Q3

REPORT INFORMATION
  Report Type: Spontaneous
  Country: US (occurrence: US)
  Receive Date: 20170721
  Receipt Date: 20170804
  Transmission Date: 20171127
  Serious: No
  Sender: FDA-Public Use
  Company Number: US-VIFOR (INTERNATIONAL) INC.-VIT-2017-07246

PATIENT
  Age: 71 Year
  Sex: Female
  Weight: 46.5 kg

DRUGS (3)
  1. HECTOROL [Concomitant]
     Active Substance: DOXERCALCIFEROL
  2. MIRCERA [Suspect]
     Active Substance: METHOXY POLYETHYLENE GLYCOL-EPOETIN BETA
     Indication: NEPHROGENIC ANAEMIA
     Route: 040
     Dates: start: 20170527, end: 20170527
  3. HEPARIN [Concomitant]
     Active Substance: HEPARIN SODIUM
     Dosage: 1000 UNITS/ML

REACTIONS (6)
  - Headache [Recovered/Resolved]
  - Fatigue [Recovered/Resolved]
  - Dizziness [Recovered/Resolved]
  - Vision blurred [Recovered/Resolved]
  - Confusional state [Recovered/Resolved]
  - Nervousness [Recovered/Resolved]

NARRATIVE: CASE EVENT DATE: 20170527
